FAERS Safety Report 7674768-5 (Version None)
Quarter: 2011Q3

REPORT INFORMATION
  Report Type: 
  Country: None (occurrence: None)
  Receive Date: 20110810
  Receipt Date: 20100511
  Transmission Date: 20111222
  Serious: Yes (Hospitalization, Other)
  Sender: FDA-Public Use
  Company Number: GB-GLAXOSMITHKLINE-B0652216A

PATIENT
  Sex: Female
  Weight: 62 kg

DRUGS (8)
  1. MABTHERA [Suspect]
     Indication: CHRONIC LYMPHOCYTIC LEUKAEMIA
     Dosage: 80MG PER DAY
     Route: 042
     Dates: start: 20091105
  2. OMEPRAZOLE [Concomitant]
     Dates: start: 20070101
  3. ASPIRIN [Concomitant]
     Dates: start: 20070101
  4. BETAHISTINE [Concomitant]
  5. CALCIUM CARBONATE [Concomitant]
     Dates: start: 20070101
  6. CHLORAMBUCIL [Suspect]
     Indication: CHRONIC LYMPHOCYTIC LEUKAEMIA
     Dosage: 16MG CYCLIC
     Route: 048
     Dates: start: 20091105, end: 20091207
  7. MORPHINE SULFATE [Concomitant]
     Dates: start: 20070101
  8. FYBOGEL [Concomitant]
     Dates: start: 20070101

REACTIONS (4)
  - VOMITING [None]
  - DIZZINESS [None]
  - NAUSEA [None]
  - LOSS OF CONSCIOUSNESS [None]
